FAERS Safety Report 8025276-3 (Version None)
Quarter: 2012Q1

REPORT INFORMATION
  Report Type: 
  Country: None (occurrence: None)
  Receive Date: 20120105
  Receipt Date: 20111227
  Transmission Date: 20120608
  Serious: Yes (Death)
  Sender: FDA-Public Use
  Company Number: US-JNJFOC-20111212264

PATIENT
  Age: 4 Year
  Sex: Male

DRUGS (8)
  1. ISOPROPANOL [Suspect]
     Indication: POISONING DELIBERATE
     Route: 048
  2. ALPRAZOLAM [Suspect]
     Indication: POISONING DELIBERATE
     Route: 048
  3. ISOPROPANOL [Suspect]
     Route: 048
  4. ETHANOL [Suspect]
     Indication: POISONING DELIBERATE
     Route: 048
  5. DIPHENHYDRAMINE HCL [Suspect]
     Route: 048
  6. CHLORPHENIRAMINE MALEATE [Suspect]
     Indication: POISONING DELIBERATE
     Route: 048
  7. DIPHENHYDRAMINE HCL [Suspect]
     Indication: POISONING DELIBERATE
     Route: 048
  8. DEXTROMETHORPHAN [Suspect]
     Indication: POISONING DELIBERATE
     Route: 048

REACTIONS (2)
  - INTENTIONAL DRUG MISUSE [None]
  - TOXICITY TO VARIOUS AGENTS [None]
